FAERS Safety Report 11047643 (Version 2)
Quarter: 2015Q2

REPORT INFORMATION
  Report Type: Spontaneous
  Country: CA (occurrence: CA)
  Receive Date: 20150420
  Receipt Date: 20150504
  Transmission Date: 20150821
  Serious: Yes (Hospitalization)
  Sender: FDA-Public Use
  Company Number: CA-BAXTER-2015BAX020781

PATIENT
  Age: 31 Year
  Sex: Male

DRUGS (4)
  1. INSULIN [Concomitant]
     Active Substance: INSULIN NOS
     Indication: DIABETES MELLITUS
     Route: 058
  2. POTASSIUM AND CALCIUM SUPPLEMENT PILLS [Concomitant]
     Indication: MINERAL SUPPLEMENTATION
     Route: 065
  3. DIANEAL W/ DEXTROSE 2.5% [Suspect]
     Active Substance: CALCIUM CHLORIDE\DEXTROSE\MAGNESIUM CHLORIDE\SODIUM CHLORIDE\SODIUM LACTATE
     Indication: DIABETIC END STAGE RENAL DISEASE
     Route: 033
     Dates: start: 201501
  4. INSULIN [Concomitant]
     Active Substance: INSULIN NOS
     Route: 058

REACTIONS (1)
  - Pneumonia [Recovering/Resolving]

NARRATIVE: CASE EVENT DATE: 201503
